FAERS Safety Report 7844889-2 (Version None)
Quarter: 2011Q4

REPORT INFORMATION
  Report Type: 
  Country: None (occurrence: None)
  Receive Date: 20111025
  Receipt Date: 20110920
  Transmission Date: 20120403
  Serious: No
  Sender: FDA-Public Use
  Company Number: US-BAYER-2011-065478

PATIENT
  Age: 51 Year
  Sex: Female
  Weight: 54.422 kg

DRUGS (2)
  1. MAGNEVIST [Suspect]
     Indication: NUCLEAR MAGNETIC RESONANCE IMAGING
  2. MAGNEVIST [Suspect]
     Indication: NUCLEAR MAGNETIC RESONANCE IMAGING BRAIN
     Dosage: 11 ML, ONCE
     Route: 042
     Dates: start: 20110719, end: 20110719

REACTIONS (1)
  - VOMITING PROJECTILE [None]
